FAERS Safety Report 9859839 (Version 4)
Quarter: 2014Q1

REPORT INFORMATION
  Report Type: Spontaneous
  Country: SK (occurrence: SK)
  Receive Date: 20140131
  Receipt Date: 20140211
  Transmission Date: 20141002
  Serious: Yes (Hospitalization, Other)
  Sender: FDA-Public Use
  Company Number: SK-PFIZER INC-2012248501

PATIENT
  Age: 59 Year
  Sex: Male

DRUGS (1)
  1. SUNITINIB MALATE [Suspect]
     Indication: RENAL CELL CARCINOMA
     Dosage: 50 MG, DAILY, CYCLIC (2 WEEKS/1 WEEK)
     Dates: start: 20120213, end: 201311

REACTIONS (9)
  - Pneumothorax spontaneous [Recovered/Resolved]
  - Hyperthyroidism [Recovered/Resolved]
  - Polyneuropathy [Not Recovered/Not Resolved]
  - Face oedema [Recovered/Resolved]
  - Eyelid oedema [Recovered/Resolved]
  - Decreased appetite [Not Recovered/Not Resolved]
  - Thrombocytopenia [Recovered/Resolved]
  - Spinal pain [Recovered/Resolved]
  - Spinal osteoarthritis [Not Recovered/Not Resolved]
